FAERS Safety Report 6681128-2 (Version None)
Quarter: 2010Q2

REPORT INFORMATION
  Report Type: 
  Country: None (occurrence: None)
  Receive Date: 20100414
  Receipt Date: 20100406
  Transmission Date: 20101027
  Serious: Yes (Hospitalization, Other)
  Sender: FDA-Public Use
  Company Number: US-ROCHE-695595

PATIENT
  Age: 49 Year
  Sex: Male

DRUGS (2)
  1. OSELTAMIVIR PHOSPHATE [Suspect]
     Route: 065
     Dates: start: 20091001
  2. LEVOFLOXACIN [Suspect]
     Route: 065

REACTIONS (2)
  - PATHOGEN RESISTANCE [None]
  - RESPIRATORY DISTRESS [None]
